FAERS Safety Report 10438907 (Version 2)
Quarter: 2014Q4

REPORT INFORMATION
  Report Type: Spontaneous
  Country: JP (occurrence: JP)
  Receive Date: 20140908
  Receipt Date: 20141031
  Transmission Date: 20150528
  Serious: Yes (Other)
  Sender: FDA-Public Use
  Company Number: PHHY2013JP162237

PATIENT
  Age: 33 Year
  Sex: Female

DRUGS (7)
  1. PREDONINE [Concomitant]
     Active Substance: PREDNISOLONE\PREDNISOLONE ACETATE\PREDNISOLONE SODIUM SUCCINATE
     Indication: PRODUCT USED FOR UNKNOWN INDICATION
     Dosage: 50 MG, UNK
     Route: 048
  2. PROGRAF [Concomitant]
     Active Substance: TACROLIMUS\TACROLIMUS ANHYDROUS
     Indication: PRODUCT USED FOR UNKNOWN INDICATION
     Dosage: 8 MG, UNK
     Route: 048
  3. PREDONINE [Concomitant]
     Active Substance: PREDNISOLONE\PREDNISOLONE ACETATE\PREDNISOLONE SODIUM SUCCINATE
     Dosage: 10 MG, UNK
     Route: 048
  4. CELLCEPT [Concomitant]
     Active Substance: MYCOPHENOLATE MOFETIL\MYCOPHENOLATE MOFETIL HYDROCHLORIDE
     Dosage: 1.5 G, UNK
     Route: 048
  5. SULFAMETHOXAZOLE AND TRIMETHOPRIM [Concomitant]
     Active Substance: SULFAMETHOXAZOLE\TRIMETHOPRIM
     Indication: PRODUCT USED FOR UNKNOWN INDICATION
     Route: 065
  6. SIMULECT [Suspect]
     Active Substance: BASILIXIMAB
     Indication: RENAL AND PANCREAS TRANSPLANT
     Dosage: 20 MG, QD
     Route: 042
     Dates: start: 20120411, end: 20120415
  7. CELLCEPT [Concomitant]
     Active Substance: MYCOPHENOLATE MOFETIL\MYCOPHENOLATE MOFETIL HYDROCHLORIDE
     Indication: PRODUCT USED FOR UNKNOWN INDICATION
     Dosage: 1 G, UNK
     Route: 048

REACTIONS (9)
  - Gastrointestinal haemorrhage [Unknown]
  - Graft thrombosis [Unknown]
  - Complications of transplanted kidney [Unknown]
  - Diarrhoea [Unknown]
  - Ileus paralytic [Unknown]
  - Abdominal abscess [Unknown]
  - Urinary tract infection [Unknown]
  - Malnutrition [Unknown]
  - Sepsis [Unknown]
